FAERS Safety Report 6523527-5 (Version None)
Quarter: 2009Q4

REPORT INFORMATION
  Report Type: 
  Country: None (occurrence: None)
  Receive Date: 20091231
  Receipt Date: 20091221
  Transmission Date: 20100525
  Serious: Yes (Hospitalization)
  Sender: FDA-Public Use
  Company Number: PHHY2009MX57577

PATIENT
  Age: 53 Year
  Sex: Male

DRUGS (4)
  1. GALVUS MET [Suspect]
     Indication: DIABETES MELLITUS
     Dosage: 2 TABLETS (50/500 MG) PER DAY
     Route: 048
     Dates: start: 20090701
  2. DIOVAN [Suspect]
     Indication: HYPERTENSION
     Dosage: 2 TABLETS PER DAY
  3. PLAVIX [Concomitant]
     Indication: PROPHYLAXIS
  4. INSULIN [Concomitant]
     Indication: DIABETES MELLITUS

REACTIONS (2)
  - CATHETERISATION CARDIAC [None]
  - MYOCARDIAL INFARCTION [None]
